FAERS Safety Report 5349094-X (Version None)
Quarter: 2007Q2

REPORT INFORMATION
  Report Type: 
  Country: None (occurrence: None)
  Receive Date: 20070516
  Receipt Date: 20070208
  Transmission Date: 20071010
  Serious: No
  Sender: FDA-Public Use
  Company Number: 200619114US

PATIENT

DRUGS (2)
  1. APIDRA [Suspect]
     Dosage: 4 U PC
  2. INSULIN GLARGINE [Concomitant]

REACTIONS (1)
  - HEPATIC ENZYME INCREASED [None]
